FAERS Safety Report 5930237-1 (Version None)
Quarter: 2008Q4

REPORT INFORMATION
  Report Type: 
  Country: None (occurrence: None)
  Receive Date: 20081024
  Receipt Date: 20081015
  Transmission Date: 20090506
  Serious: Yes (Other)
  Sender: FDA-Public Use
  Company Number: US-GENENTECH-269937

PATIENT
  Sex: Male
  Weight: 42.8 kg

DRUGS (1)
  1. SOMATROPIN [Suspect]
     Indication: UNEVALUABLE EVENT
     Dosage: 3.6 MG, QD
     Route: 058
     Dates: start: 20080402

REACTIONS (1)
  - CARDIOMEGALY [None]
